FAERS Safety Report 15959567 (Version 1)
Quarter: 2019Q1

REPORT INFORMATION
  Report Type: Spontaneous
  Country: IT (occurrence: IT)
  Receive Date: 20190214
  Receipt Date: 20190214
  Transmission Date: 20190417
  Serious: Yes (Hospitalization)
  Sender: FDA-Public Use
  Company Number: IT-ACCORD-106797

PATIENT
  Age: 70 Year
  Sex: Female

DRUGS (12)
  1. LANOXIN [Concomitant]
     Active Substance: DIGOXIN
     Dosage: 0.125 MG
     Route: 048
  2. SPIRONOLACTONE. [Suspect]
     Active Substance: SPIRONOLACTONE
     Indication: HYPERTENSION
     Route: 048
     Dates: start: 20170101, end: 20170602
  3. BUSCOPAN [Concomitant]
     Active Substance: BUTYLSCOPOLAMINE BROMIDE
     Route: 048
  4. OMEPRAZOLE. [Concomitant]
     Active Substance: OMEPRAZOLE
     Route: 048
  5. XANAX [Concomitant]
     Active Substance: ALPRAZOLAM
     Route: 048
  6. APIXABAN [Concomitant]
     Active Substance: APIXABAN
  7. ESKIM [Concomitant]
     Active Substance: OMEGA-3 FATTY ACIDS
     Route: 047
  8. ACETYLSALICYLIC ACID [Concomitant]
     Active Substance: ASPIRIN
     Route: 048
  9. CLOPIDOGREL [Concomitant]
     Active Substance: CLOPIDOGREL BISULFATE
     Route: 048
  10. CARDICOR [Concomitant]
     Active Substance: BISOPROLOL
  11. ANTRA [Concomitant]
     Active Substance: OMEPRAZOLE
     Dosage: 20 MG
     Route: 048
  12. KARVEA [Suspect]
     Active Substance: IRBESARTAN
     Indication: HYPERTENSION
     Route: 048
     Dates: start: 20170101, end: 20170602

REACTIONS (3)
  - Acute kidney injury [Unknown]
  - Contraindicated product administered [Unknown]
  - Abdominal tenderness [Unknown]

NARRATIVE: CASE EVENT DATE: 20170602
